FAERS Safety Report 25794445 (Version 1)
Quarter: 2025Q3

REPORT INFORMATION
  Report Type: Report from Study
  Country: IN (occurrence: IN)
  Receive Date: 20250912
  Receipt Date: 20250912
  Transmission Date: 20251020
  Serious: Yes (Hospitalization)
  Sender: ROCHE
  Company Number: IN-ROCHE-10000376646

PATIENT
  Age: 81 Year
  Sex: Male
  Weight: 41 kg

DRUGS (10)
  1. POLIVY [Suspect]
     Active Substance: POLATUZUMAB VEDOTIN-PIIQ
     Indication: Diffuse large B-cell lymphoma
     Route: 042
     Dates: start: 20250713
  2. RITUXIMAB [Concomitant]
     Active Substance: RITUXIMAB
  3. DOXORUBICIN [Concomitant]
     Active Substance: DOXORUBICIN
  4. PREDNISOLONE [Concomitant]
     Active Substance: PREDNISOLONE
  5. URSODIOL [Concomitant]
     Active Substance: URSODIOL
  6. TRANEXAMIC ACID [Concomitant]
     Active Substance: TRANEXAMIC ACID
  7. ULTRACET [Concomitant]
     Active Substance: ACETAMINOPHEN\TRAMADOL HYDROCHLORIDE
  8. FLUQUADRIL [Concomitant]
  9. PREVENAR [Concomitant]
     Active Substance: PNEUMOCOCCAL 7-VALENT CONJUGATE VACCINE (DIPHTHERIA CRM197 PROTEIN)
  10. HEP B VACCINE ADULT CIPLA [Concomitant]

REACTIONS (7)
  - Off label use [Unknown]
  - Asthenia [Unknown]
  - Decreased appetite [Unknown]
  - Nausea [Unknown]
  - Abdominal pain [Unknown]
  - Vomiting [Unknown]
  - Syncope [Unknown]

NARRATIVE: CASE EVENT DATE: 20250802
